FAERS Safety Report 8920710 (Version 9)
Quarter: 2015Q2

REPORT INFORMATION
  Report Type: Report from Study
  Country: CZ (occurrence: CZ)
  Receive Date: 20121122
  Receipt Date: 20150509
  Transmission Date: 20150821
  Serious: Yes (Hospitalization)
  Sender: FDA-Public Use
  Company Number: CZ-ROCHE-1081723

PATIENT
  Age: 50 Year
  Sex: Male
  Weight: 80 kg

DRUGS (4)
  1. FRAMYKOIN (BACITRACIN ZINC/NEOMYCIN SULFATE) [Concomitant]
     Route: 065
     Dates: start: 20100430
  2. KERASAL [Concomitant]
     Active Substance: MENTHOL
     Route: 065
     Dates: start: 20120430
  3. VEMURAFENIB [Suspect]
     Active Substance: VEMURAFENIB
     Indication: MALIGNANT MELANOMA
     Dosage: LAST DOSE PRIOR TO SAE: 12/JUN/2012
     Route: 048
     Dates: start: 20120404
  4. DETRALEX [Concomitant]
     Active Substance: DIOSMIN\HESPERIDIN
     Dosage: TOTAL DAILY DOSE : 6 UNITS
     Route: 065
     Dates: start: 20120606

REACTIONS (1)
  - Anal abscess [Recovered/Resolved]

NARRATIVE: CASE EVENT DATE: 20120612
